FAERS Safety Report 15397198 (Version 1)
Quarter: 2018Q3

REPORT INFORMATION
  Report Type: Spontaneous
  Country: FR (occurrence: FR)
  Receive Date: 20180918
  Receipt Date: 20180918
  Transmission Date: 20181010
  Serious: Yes (Death, Hospitalization)
  Sender: FDA-Public Use
  Company Number: FR-PFIZER INC-2018370192

PATIENT
  Age: 77 Year
  Sex: Female
  Weight: 67 kg

DRUGS (16)
  1. LANSOPRAZOLE MYLAN [Suspect]
     Active Substance: LANSOPRAZOLE
     Indication: PROPHYLAXIS AGAINST GASTROINTESTINAL ULCER
     Dosage: 15 MG, 1X/DAY
     Route: 048
     Dates: start: 20180621
  2. RIFADINE [RIFAMPICIN SODIUM] [Concomitant]
     Dosage: 600 MG, 1X/DAY
     Route: 042
     Dates: start: 20180615
  3. DUROGESIC [Concomitant]
     Active Substance: FENTANYL
     Dosage: 1 DF, 3X/DAY
     Route: 062
  4. LOVENOX [Concomitant]
     Active Substance: ENOXAPARIN SODIUM
     Dosage: 4000 IU, 1X/DAY
     Route: 058
  5. AMOXICILLINE PANPHARMA [Suspect]
     Active Substance: AMOXICILLIN
     Indication: OSTEOMYELITIS
     Dosage: 1 G, SINGLE
     Route: 042
     Dates: start: 20180626, end: 20180626
  6. FUROSEMIDE ARROW [Suspect]
     Active Substance: FUROSEMIDE
     Indication: OEDEMA
     Dosage: 20 MG, 1X/DAY
     Route: 048
     Dates: start: 20180627
  7. ALPRAZOLAM ARROW [Concomitant]
     Active Substance: ALPRAZOLAM
     Dosage: UNK
     Route: 048
  8. DAFALGAN [Concomitant]
     Active Substance: ACETAMINOPHEN
     Dosage: 1 G, UNK
     Route: 048
  9. LEXOMIL [Suspect]
     Active Substance: BROMAZEPAM
     Indication: ANXIETY
     Dosage: 6 MG, 1X/DAY
     Route: 048
     Dates: start: 20180623
  10. MACROGOL 4000 MYLAN [Concomitant]
     Active Substance: POLYETHYLENE GLYCOL 4000
     Dosage: 1 DF, UNK
     Route: 048
  11. FLUOXETINE ARROW [Concomitant]
     Active Substance: FLUOXETINE HYDROCHLORIDE
     Dosage: 20 MG, 1X/DAY
     Route: 048
  12. CUBICIN [Concomitant]
     Active Substance: DAPTOMYCIN
     Dosage: 600 MG, 1X/DAY
     Route: 042
     Dates: start: 20180615
  13. ALDACTONE [Suspect]
     Active Substance: SPIRONOLACTONE
     Indication: OEDEMA
     Dosage: 25 MG, SINGLE
     Route: 048
     Dates: start: 20180626, end: 20180626
  14. FERINJECT [Suspect]
     Active Substance: FERRIC CARBOXYMALTOSE
     Indication: ANAEMIA
     Dosage: 1 G, SINGLE
     Route: 042
     Dates: start: 20180628, end: 20180628
  15. MIRTAZAPINE ARROW [Concomitant]
     Active Substance: MIRTAZAPINE
     Dosage: 15 MG, 1X/DAY
     Route: 048
  16. TERBUTALINE ARROW [Concomitant]
     Active Substance: TERBUTALINE
     Dosage: 7.5 MG, 1X/DAY
     Route: 055

REACTIONS (1)
  - Acute generalised exanthematous pustulosis [Unknown]

NARRATIVE: CASE EVENT DATE: 20180630
